FAERS Safety Report 15354383 (Version 2)
Quarter: 2018Q3

REPORT INFORMATION
  Report Type: Spontaneous
  Country: CA (occurrence: CA)
  Receive Date: 20180906
  Receipt Date: 20180911
  Transmission Date: 20181010
  Serious: Yes (Hospitalization)
  Sender: FDA-Public Use
  Company Number: CA-CELLTRION INC.-2018CA018615

PATIENT

DRUGS (10)
  1. INFLECTRA [Suspect]
     Active Substance: INFLIXIMAB-DYYB
     Dosage: 400 MG, EVERY 0,2,6 WEEKS AND THEN EVERY 8 WEEKS)
     Route: 042
     Dates: start: 20180308
  2. PREDNISONE. [Concomitant]
     Active Substance: PREDNISONE
  3. INFLECTRA [Suspect]
     Active Substance: INFLIXIMAB-DYYB
     Dosage: 400 MG, EVERY 0,2,6 WEEKS AND THEN EVERY 8 WEEKS)
     Route: 042
     Dates: start: 20180503
  4. VITAMIN B12 [Concomitant]
     Active Substance: CYANOCOBALAMIN
     Dosage: UNK
  5. INFLECTRA [Suspect]
     Active Substance: INFLIXIMAB-DYYB
     Dosage: UNK
     Route: 065
     Dates: start: 20180628
  6. METHOTREXATE SODIUM. [Concomitant]
     Active Substance: METHOTREXATE SODIUM
     Dosage: UNK
     Dates: start: 201704
  7. PENTASA [Concomitant]
     Active Substance: MESALAMINE
     Dosage: UNK
  8. FOLIC ACID. [Concomitant]
     Active Substance: FOLIC ACID
     Dosage: UNK
     Dates: start: 201704
  9. INFLECTRA [Suspect]
     Active Substance: INFLIXIMAB-DYYB
     Indication: CROHN^S DISEASE
     Dosage: 400 MG, CYCLIC(EVERY 0,2,6 WEEKS AND THEN EVERY 8 WEEKS)
     Route: 042
     Dates: start: 20180125
  10. INFLECTRA [Suspect]
     Active Substance: INFLIXIMAB-DYYB
     Dosage: 400 MG, EVERY 0, 2, 6 WEEKS, THEN EVERY 8 WEEKS
     Route: 042
     Dates: start: 20180823

REACTIONS (4)
  - Small intestinal obstruction [Unknown]
  - Abdominal pain [Recovering/Resolving]
  - Blood pressure fluctuation [Unknown]
  - Intestinal stenosis [Unknown]

NARRATIVE: CASE EVENT DATE: 20180503
